FAERS Safety Report 7935028-8 (Version None)
Quarter: 2011Q4

REPORT INFORMATION
  Report Type: 
  Country: None (occurrence: None)
  Receive Date: 20111117
  Receipt Date: 20111103
  Transmission Date: 20120403
  Serious: Yes (Hospitalization, Other)
  Sender: FDA-Public Use
  Company Number: 2011MA016045

PATIENT
  Sex: Male
  Weight: 150 kg

DRUGS (17)
  1. LIPITOR [Concomitant]
  2. NAMENDA [Concomitant]
  3. COREG [Concomitant]
  4. NEURONTIN [Concomitant]
  5. ASPIRIN [Concomitant]
  6. VITAMIN E [Concomitant]
  7. ZAROXOLYN [Concomitant]
  8. CARAFATE [Concomitant]
  9. POTASSIUM CHLORIDE [Concomitant]
  10. LASIX [Concomitant]
  11. NITROGLYCERIN [Concomitant]
  12. DIGIBIND [Concomitant]
  13. DIGOXIN [Suspect]
     Indication: CORONARY ARTERY BYPASS
     Dosage: 0.25 MG;QD;PO
     Route: 048
     Dates: start: 19980101, end: 20080109
  14. AMIODARONE HCL [Concomitant]
  15. COUMADIN [Concomitant]
  16. MAVIK [Concomitant]
  17. SENOKOT [Concomitant]

REACTIONS (21)
  - TRANSIENT ISCHAEMIC ATTACK [None]
  - MITRAL VALVE INCOMPETENCE [None]
  - EJECTION FRACTION DECREASED [None]
  - DIZZINESS [None]
  - SPEECH DISORDER [None]
  - INJURY [None]
  - ECONOMIC PROBLEM [None]
  - HYPOAESTHESIA [None]
  - FAILURE TO THRIVE [None]
  - CONFUSIONAL STATE [None]
  - TOXICITY TO VARIOUS AGENTS [None]
  - MENTAL IMPAIRMENT [None]
  - ASTHENIA [None]
  - CONDITION AGGRAVATED [None]
  - CARDIOMEGALY [None]
  - CARDIAC FAILURE CONGESTIVE [None]
  - PLEURAL EFFUSION [None]
  - TRICUSPID VALVE INCOMPETENCE [None]
  - CHRONIC OBSTRUCTIVE PULMONARY DISEASE [None]
  - SICK SINUS SYNDROME [None]
  - UNEVALUABLE EVENT [None]
